FAERS Safety Report 10334048 (Version 1)
Quarter: 2014Q3

REPORT INFORMATION
  Report Type: Spontaneous
  Country: US (occurrence: None)
  Receive Date: 20140721
  Receipt Date: 20140721
  Transmission Date: 20150326
  Serious: Yes (Disabling, Other)
  Sender: FDA-Public Use
  Company Number: None

PATIENT
  Age: 29 Year
  Sex: Female
  Weight: 61.24 kg

DRUGS (2)
  1. CYMBALTA [Suspect]
     Active Substance: DULOXETINE HYDROCHLORIDE
     Indication: MIGRAINE
     Dosage: 1 PILL
     Route: 048
  2. CYMBALTA [Suspect]
     Active Substance: DULOXETINE HYDROCHLORIDE
     Indication: DEPRESSION
     Dosage: 1 PILL
     Route: 048

REACTIONS (8)
  - Diarrhoea [None]
  - Vertigo [None]
  - Dizziness [None]
  - Dysstasia [None]
  - Night sweats [None]
  - Anger [None]
  - Nausea [None]
  - Drug withdrawal syndrome [None]

NARRATIVE: CASE EVENT DATE: 20140720
